FAERS Safety Report 18540850 (Version 1)
Quarter: 2020Q4

REPORT INFORMATION
  Report Type: Spontaneous
  Country: US (occurrence: US)
  Receive Date: 20201124
  Receipt Date: 20201124
  Transmission Date: 20210114
  Serious: No
  Sender: FDA-Public Use
  Company Number: US-PFIZER INC-2020461956

PATIENT
  Age: 39 Year
  Sex: Female
  Weight: 159.6 kg

DRUGS (1)
  1. MORPHINE SULFATE. [Suspect]
     Active Substance: MORPHINE SULFATE
     Indication: PELVIC PAIN
     Dosage: UNK

REACTIONS (1)
  - Drug hypersensitivity [Unknown]
